FAERS Safety Report 5204375-5 (Version None)
Quarter: 2007Q1

REPORT INFORMATION
  Report Type: 
  Country: None (occurrence: None)
  Receive Date: 20070110
  Receipt Date: 20060308
  Transmission Date: 20070707
  Serious: No
  Sender: FDA-Public Use
  Company Number: US-BRISTOL-MYERS SQUIBB COMPANY-13308705

PATIENT
  Sex: Female

DRUGS (3)
  1. ABILIFY [Suspect]
  2. ZYPREXA [Concomitant]
  3. STALEVO 100 [Concomitant]

REACTIONS (2)
  - DELUSION [None]
  - HALLUCINATION [None]
